FAERS Safety Report 6344110-0 (Version None)
Quarter: 2009Q3

REPORT INFORMATION
  Report Type: 
  Country: None (occurrence: None)
  Receive Date: 20090908
  Receipt Date: 20090901
  Transmission Date: 20100115
  Serious: Yes (Death)
  Sender: FDA-Public Use
  Company Number: NO-ASTRAZENECA-2009SE11202

PATIENT
  Age: 0 Week
  Sex: Male

DRUGS (1)
  1. ATACAND [Suspect]
     Route: 064

REACTIONS (4)
  - NEONATAL RESPIRATORY DISTRESS SYNDROME [None]
  - PULMONARY HYPOPLASIA [None]
  - RENAL APLASIA [None]
  - SKULL MALFORMATION [None]
